FAERS Safety Report 8126881-6 (Version None)
Quarter: 2012Q1

REPORT INFORMATION
  Report Type: 
  Country: None (occurrence: None)
  Receive Date: 20120210
  Receipt Date: 20120207
  Transmission Date: 20120608
  Serious: No
  Sender: FDA-Public Use
  Company Number: US-PFIZER INC-2012033545

PATIENT
  Sex: Female
  Weight: 71.202 kg

DRUGS (4)
  1. PAROXETINE [Concomitant]
     Indication: DEPRESSION
     Dosage: UNK
  2. LEVOXYL [Concomitant]
     Indication: HYPOTHYROIDISM
     Dosage: UNK
  3. LYRICA [Suspect]
     Dosage: 150 MG, 1X/DAY
     Route: 048
     Dates: start: 20120205
  4. LYRICA [Suspect]
     Indication: FIBROMYALGIA
     Dosage: 75 MG, 2X/DAY
     Route: 048
     Dates: start: 20110426, end: 20110501

REACTIONS (3)
  - FATIGUE [None]
  - SOMNOLENCE [None]
  - DIZZINESS [None]
